FAERS Safety Report 13553815 (Version 1)
Quarter: 2017Q2

REPORT INFORMATION
  Report Type: Spontaneous
  Country: US (occurrence: US)
  Receive Date: 20170517
  Receipt Date: 20170517
  Transmission Date: 20170830
  Serious: Yes (Other)
  Sender: FDA-Public Use
  Company Number: US-WEST-WARD PHARMACEUTICALS CORP.-US-H14001-17-01450

PATIENT
  Age: 85 Year
  Sex: Female

DRUGS (2)
  1. PHENERGAN [Suspect]
     Active Substance: PROMETHAZINE HYDROCHLORIDE
     Indication: NAUSEA
     Route: 041
  2. ANTICOAGULANS [Concomitant]
     Indication: PULMONARY EMBOLISM
     Route: 065

REACTIONS (2)
  - Aphasia [Recovering/Resolving]
  - Hemiparesis [Recovering/Resolving]
